FAERS Safety Report 18136050 (Version 1)
Quarter: 2020Q3

REPORT INFORMATION
  Report Type: Spontaneous
  Country: NL (occurrence: NL)
  Receive Date: 20200811
  Receipt Date: 20200811
  Transmission Date: 20201103
  Serious: Yes (Other)
  Sender: FDA-Public Use
  Company Number: NVSC2020NL219705

PATIENT
  Age: 62 Year
  Sex: Female

DRUGS (4)
  1. ANAFRANIL [Suspect]
     Active Substance: CLOMIPRAMINE HYDROCHLORIDE
     Indication: ANXIETY DISORDER
     Dosage: UNK
     Route: 065
     Dates: start: 1978, end: 1978
  2. ANAFRANIL [Suspect]
     Active Substance: CLOMIPRAMINE HYDROCHLORIDE
     Dosage: UNK
     Route: 065
     Dates: start: 198901
  3. ANAFRANIL [Suspect]
     Active Substance: CLOMIPRAMINE HYDROCHLORIDE
     Dosage: UNK
     Route: 065
     Dates: end: 199008
  4. SYNALAR [Concomitant]
     Active Substance: FLUOCINOLONE ACETONIDE
     Indication: PRODUCT USED FOR UNKNOWN INDICATION
     Route: 065

REACTIONS (24)
  - Dyspnoea [Not Recovered/Not Resolved]
  - Pain in jaw [Unknown]
  - Ear pain [Unknown]
  - Skin fissures [Unknown]
  - Pain [Unknown]
  - Rhinalgia [Unknown]
  - Limb injury [Unknown]
  - Sneezing [Recovered/Resolved]
  - Fatigue [Unknown]
  - Chondropathy [Unknown]
  - Pain in extremity [Unknown]
  - Epicondylitis [Unknown]
  - Gait disturbance [Unknown]
  - Loss of libido [Not Recovered/Not Resolved]
  - Myalgia [Not Recovered/Not Resolved]
  - Arthralgia [Not Recovered/Not Resolved]
  - Dry mouth [Not Recovered/Not Resolved]
  - Abdominal pain upper [Unknown]
  - Musculoskeletal disorder [Unknown]
  - Feeling cold [Not Recovered/Not Resolved]
  - Rhinorrhoea [Recovered/Resolved]
  - Finger deformity [Unknown]
  - Back pain [Recovered/Resolved]
  - Oral pain [Unknown]
